FAERS Safety Report 15868072 (Version 2)
Quarter: 2019Q1

REPORT INFORMATION
  Report Type: Report from Study
  Country: US (occurrence: US)
  Receive Date: 20190125
  Receipt Date: 20190221
  Transmission Date: 20190417
  Serious: No
  Sender: FDA-Public Use
  Company Number: US-ALEXION PHARMACEUTICALS INC.-A201901014

PATIENT
  Sex: Female
  Weight: 72.73 kg

DRUGS (2)
  1. STRENSIQ [Suspect]
     Active Substance: ASFOTASE ALFA
     Indication: HYPOPHOSPHATASIA
     Dosage: 80 MG, TIW
     Route: 058
     Dates: start: 20180723
  2. STRENSIQ [Suspect]
     Active Substance: ASFOTASE ALFA
     Dosage: 66 MG, TIW
     Route: 058

REACTIONS (1)
  - Injection site ulcer [Unknown]

NARRATIVE: CASE EVENT DATE: 20190117
